FAERS Safety Report 8335556-X (Version None)
Quarter: 2012Q2

REPORT INFORMATION
  Report Type: 
  Country: None (occurrence: None)
  Receive Date: 20120503
  Receipt Date: 20120429
  Transmission Date: 20120825
  Serious: Yes (Other)
  Sender: FDA-Public Use
  Company Number: FR-AMGEN-FRASP2012027393

PATIENT
  Sex: Female

DRUGS (1)
  1. PROLIA [Suspect]
     Indication: OSTEOPOROSIS POSTMENOPAUSAL
     Dosage: UNK
     Dates: start: 20120416

REACTIONS (4)
  - OSTEONECROSIS OF JAW [None]
  - GLOSSITIS [None]
  - PAIN IN EXTREMITY [None]
  - TONGUE DISORDER [None]
